FAERS Safety Report 17618884 (Version 1)
Quarter: 2020Q2

REPORT INFORMATION
  Report Type: Spontaneous
  Country: US (occurrence: US)
  Receive Date: 20200403
  Receipt Date: 20200403
  Transmission Date: 20200713
  Serious: No
  Sender: FDA-Public Use
  Company Number: US-BAUSCH-BL-2020-007831

PATIENT
  Age: 20 Year
  Sex: Male

DRUGS (2)
  1. LUMIFY [Suspect]
     Active Substance: BRIMONIDINE TARTRATE
     Indication: PRODUCT USE IN UNAPPROVED INDICATION
     Dosage: 1 DROP IN BOTH EYES AS NEEDED, 3RD BOTTLE
     Route: 047
     Dates: start: 202003, end: 20200314
  2. LUMIFY [Suspect]
     Active Substance: BRIMONIDINE TARTRATE
     Indication: CONJUNCTIVITIS
     Dosage: 1 DROP IN BOTH EYES AS NEEDED, 1ST AND 2ND BOTTLE
     Route: 047
     Dates: start: 20200101, end: 202002

REACTIONS (11)
  - Eyelid margin crusting [Recovering/Resolving]
  - Eye swelling [Recovering/Resolving]
  - Eye inflammation [Not Recovered/Not Resolved]
  - Foreign body sensation in eyes [Recovering/Resolving]
  - Eyelid skin dryness [Recovering/Resolving]
  - Migraine [Recovering/Resolving]
  - Product prescribing error [Unknown]
  - Dry eye [Not Recovered/Not Resolved]
  - Eye irritation [Recovering/Resolving]
  - Product use in unapproved indication [Unknown]
  - Blepharitis [Recovering/Resolving]

NARRATIVE: CASE EVENT DATE: 2020
